FAERS Safety Report 18465218 (Version 2)
Quarter: 2020Q4

REPORT INFORMATION
  Report Type: Spontaneous
  Country: US (occurrence: US)
  Receive Date: 20201105
  Receipt Date: 20201210
  Transmission Date: 20210114
  Serious: No
  Sender: FDA-Public Use
  Company Number: US-DRREDDYS-USA/USA/20/0128753

PATIENT
  Age: 32 Year
  Sex: Female

DRUGS (2)
  1. TETRABENAZINE TABLETS [Suspect]
     Active Substance: TETRABENAZINE
     Indication: MOVEMENT DISORDER
     Route: 048
  2. CLONAZEPAM. [Suspect]
     Active Substance: CLONAZEPAM
     Indication: MOVEMENT DISORDER

REACTIONS (2)
  - Drug intolerance [Unknown]
  - Anxiety [Unknown]
